FAERS Safety Report 7274953-0 (Version None)
Quarter: 2011Q1

REPORT INFORMATION
  Report Type: 
  Country: None (occurrence: None)
  Receive Date: 20110204
  Receipt Date: 20110201
  Transmission Date: 20110831
  Serious: Yes (Hospitalization, Other)
  Sender: FDA-Public Use
  Company Number: FR-ROCHE-657327

PATIENT
  Age: 49 Year
  Sex: Female

DRUGS (6)
  1. NEORECORMON [Suspect]
     Indication: ANAEMIA
     Dosage: FORM: INJECTION
     Route: 065
     Dates: end: 20090827
  2. COPEGUS [Suspect]
     Indication: HEPATITIS C
     Dosage: DOSE REDUCED
     Route: 065
     Dates: start: 20090213
  3. NOCTRAN [Concomitant]
     Indication: DEPRESSION
  4. SUBUTEX [Concomitant]
  5. PEGASYS [Suspect]
     Indication: HEPATITIS C
     Dosage: FORM: INJECTION
     Route: 065
     Dates: start: 20090213
  6. COPEGUS [Suspect]
     Route: 065
     Dates: start: 20090820

REACTIONS (3)
  - ANTI-ERYTHROPOIETIN ANTIBODY POSITIVE [None]
  - ANAEMIA [None]
  - GENERAL PHYSICAL HEALTH DETERIORATION [None]
